FAERS Safety Report 16283193 (Version 4)
Quarter: 2021Q4

REPORT INFORMATION
  Report Type: Spontaneous
  Country: US (occurrence: None)
  Receive Date: 20190507
  Receipt Date: 20211127
  Transmission Date: 20220303
  Serious: Yes (Hospitalization, Other)
  Sender: FDA-Public Use
  Company Number: 2019SE62525

PATIENT
  Age: 17690 Day
  Sex: Female
  Weight: 105 kg

DRUGS (64)
  1. PRILOSEC [Suspect]
     Active Substance: OMEPRAZOLE MAGNESIUM
     Indication: Gastrooesophageal reflux disease
     Route: 048
  2. PRILOSEC [Suspect]
     Active Substance: OMEPRAZOLE MAGNESIUM
     Indication: Gastrooesophageal reflux disease
     Route: 048
     Dates: start: 2012, end: 2018
  3. PRILOSEC [Suspect]
     Active Substance: OMEPRAZOLE MAGNESIUM
     Indication: Gastrooesophageal reflux disease
     Route: 048
     Dates: start: 20180516
  4. PRILOSEC [Suspect]
     Active Substance: OMEPRAZOLE MAGNESIUM
     Indication: Gastrooesophageal reflux disease
     Dosage: GENERIC
     Route: 065
     Dates: start: 20141015, end: 20160716
  5. PRILOSEC [Suspect]
     Active Substance: OMEPRAZOLE MAGNESIUM
     Indication: Gastrooesophageal reflux disease
     Dosage: GENERIC
     Route: 065
     Dates: start: 20080729
  6. PRILOSEC OTC [Suspect]
     Active Substance: OMEPRAZOLE MAGNESIUM
     Indication: Gastrooesophageal reflux disease
     Route: 048
  7. PRILOSEC OTC [Suspect]
     Active Substance: OMEPRAZOLE MAGNESIUM
     Indication: Gastrooesophageal reflux disease
     Route: 048
     Dates: start: 2012, end: 2018
  8. TUMS [Concomitant]
     Active Substance: CALCIUM CARBONATE
     Dates: start: 20190412
  9. ACETAMINOPHEN\OXYCODONE HYDROCHLORIDE [Concomitant]
     Active Substance: ACETAMINOPHEN\OXYCODONE HYDROCHLORIDE
     Dates: start: 20150209
  10. PROPRANOLOL [Concomitant]
     Active Substance: PROPRANOLOL HYDROCHLORIDE
     Dates: start: 20140511
  11. LOSARTAN POTASSIUM [Concomitant]
     Active Substance: LOSARTAN POTASSIUM
     Dates: start: 20140420
  12. CYCLOBENZAPRINE [Concomitant]
     Active Substance: CYCLOBENZAPRINE
     Dates: start: 20140414
  13. CITALOPRAM [Concomitant]
     Active Substance: CITALOPRAM HYDROBROMIDE
     Dates: start: 20140424
  14. JANUVIA [Concomitant]
     Active Substance: SITAGLIPTIN PHOSPHATE
     Dates: start: 20140126
  15. ONDANSETRON HCL [Concomitant]
     Active Substance: ONDANSETRON HYDROCHLORIDE
     Dates: start: 20140127
  16. TRAMADOL HCL [Concomitant]
     Active Substance: TRAMADOL HYDROCHLORIDE
     Dates: start: 20140114
  17. LISINOPRIL [Concomitant]
     Active Substance: LISINOPRIL
     Dates: start: 20140105
  18. AMOXICILLIN [Concomitant]
     Active Substance: AMOXICILLIN
     Dates: start: 20140102
  19. FLUCONAZOLE [Concomitant]
     Active Substance: FLUCONAZOLE
     Dates: start: 20140102
  20. RIZATRIPTAN [Concomitant]
     Active Substance: RIZATRIPTAN
     Dates: start: 20131001
  21. GLYCYRRHIZIC ACID/SULFAMETHOXAZOLE/AMINOCAPROIC ACID/CHLORPHENAMINE [Concomitant]
     Dates: start: 20131004
  22. AMITRIPTYLINE [Concomitant]
     Active Substance: AMITRIPTYLINE
     Dates: start: 20130531
  23. ALPRAZOLAM [Concomitant]
     Active Substance: ALPRAZOLAM
     Dates: start: 20130507
  24. PRAVASTATIN SODIUM [Concomitant]
     Active Substance: PRAVASTATIN SODIUM
     Dates: start: 20121211
  25. SPIRONOLACTONE [Concomitant]
     Active Substance: SPIRONOLACTONE
     Dates: start: 20121211
  26. NABUMETONE [Concomitant]
     Active Substance: NABUMETONE
     Dates: start: 20080729
  27. GABAPENTIN [Concomitant]
     Active Substance: GABAPENTIN
     Dates: start: 20130206
  28. FUROSEMIDE [Concomitant]
     Active Substance: FUROSEMIDE
     Dates: start: 20150202
  29. SERTRALINE [Concomitant]
     Active Substance: SERTRALINE HYDROCHLORIDE
     Dates: start: 20150202
  30. URSODIOL [Concomitant]
     Active Substance: URSODIOL
     Dates: start: 20150202
  31. DOCUSATE [Concomitant]
     Active Substance: DOCUSATE
     Dates: start: 20190412
  32. FERROUS SULFATE [Concomitant]
     Active Substance: FERROUS SULFATE
     Dates: start: 20180413
  33. HYDROMORPHONE [Concomitant]
     Active Substance: HYDROMORPHONE
     Dates: start: 20190412
  34. APIS MELLIFICA/FUMARIC ACID/MYOSOTIS ARVENSIS/MAGNESIUM PHOSPHATE/OXAL [Concomitant]
     Dates: start: 20171226
  35. LOPERAMIDE [Concomitant]
     Active Substance: LOPERAMIDE
     Dates: start: 20190412
  36. SEVELAMER [Concomitant]
     Active Substance: SEVELAMER
     Dates: start: 20190412
  37. REQUIP [Concomitant]
     Active Substance: ROPINIROLE HYDROCHLORIDE
  38. BENADRYL [Concomitant]
     Active Substance: DIPHENHYDRAMINE HYDROCHLORIDE
  39. KLONOPIN [Concomitant]
     Active Substance: CLONAZEPAM
  40. CHRONULAC [Concomitant]
     Active Substance: LACTULOSE
  41. LIDODERM [Concomitant]
     Active Substance: LIDOCAINE
  42. METAMUCIL [Concomitant]
     Active Substance: PLANTAGO SEED
  43. ERYTHROMYCIN [Concomitant]
     Active Substance: ERYTHROMYCIN
  44. SIMVASTATIN [Concomitant]
     Active Substance: SIMVASTATIN
  45. METOPROLOL SUCCINATE [Concomitant]
     Active Substance: METOPROLOL SUCCINATE
  46. HYDRALAZINE [Concomitant]
     Active Substance: HYDRALAZINE HYDROCHLORIDE
  47. DAPSONE [Concomitant]
     Active Substance: DAPSONE
  48. MOTRIN [Concomitant]
     Active Substance: IBUPROFEN
  49. ROBAXIN [Concomitant]
     Active Substance: METHOCARBAMOL
  50. PHENERGAN [Concomitant]
     Active Substance: PROMETHAZINE HYDROCHLORIDE
  51. SODIUM BICARBONATE [Concomitant]
     Active Substance: SODIUM BICARBONATE
  52. POTASSIUM CHLORIDE [Concomitant]
     Active Substance: POTASSIUM CHLORIDE
  53. SENNOSIDES [Concomitant]
     Active Substance: SENNOSIDES
  54. MIRALAX [Concomitant]
     Active Substance: POLYETHYLENE GLYCOL 3350
  55. ROXICODONE [Concomitant]
     Active Substance: OXYCODONE HYDROCHLORIDE
  56. LOVENOX [Concomitant]
     Active Substance: ENOXAPARIN SODIUM
  57. CODEINE [Concomitant]
     Active Substance: CODEINE
  58. NYSTATIN [Concomitant]
     Active Substance: NYSTATIN
  59. REGLAN [Concomitant]
     Active Substance: METOCLOPRAMIDE HYDROCHLORIDE
  60. ARANESP [Concomitant]
     Active Substance: DARBEPOETIN ALFA
  61. QVAR [Concomitant]
     Active Substance: BECLOMETHASONE DIPROPIONATE
  62. ANTIVERT [Concomitant]
     Active Substance: MECLIZINE HYDROCHLORIDE
  63. FLONASE [Concomitant]
     Active Substance: FLUTICASONE PROPIONATE
  64. DESYREL [Concomitant]
     Active Substance: TRAZODONE HYDROCHLORIDE

REACTIONS (9)
  - Chronic kidney disease [Not Recovered/Not Resolved]
  - End stage renal disease [Not Recovered/Not Resolved]
  - Acute kidney injury [Not Recovered/Not Resolved]
  - Nephrogenic anaemia [Unknown]
  - Chronic kidney disease-mineral and bone disorder [Unknown]
  - Hyperparathyroidism secondary [Unknown]
  - Renal tubular necrosis [Unknown]
  - Renal failure [Unknown]
  - Hyperkalaemia [Unknown]

NARRATIVE: CASE EVENT DATE: 20160101
